FAERS Safety Report 6703097-9 (Version None)
Quarter: 2010Q2

REPORT INFORMATION
  Report Type: 
  Country: None (occurrence: None)
  Receive Date: 20100430
  Receipt Date: 20100423
  Transmission Date: 20101027
  Serious: Yes (Hospitalization)
  Sender: FDA-Public Use
  Company Number: US-BIOGENIDEC-2008BI029298

PATIENT
  Age: 37 Year
  Sex: Female
  Weight: 54 kg

DRUGS (1)
  1. TYSABRI [Suspect]
     Indication: CROHN'S DISEASE
     Route: 042
     Dates: start: 20080416

REACTIONS (18)
  - ABDOMINAL PAIN UPPER [None]
  - ASTHENIA [None]
  - BACTERIAL SEPSIS [None]
  - CATHETER PLACEMENT [None]
  - CATHETER SITE PAIN [None]
  - CHILLS [None]
  - CROHN'S DISEASE [None]
  - DEVICE RELATED INFECTION [None]
  - FUNGAL INFECTION [None]
  - GALLBLADDER DISORDER [None]
  - HYPOTENSION [None]
  - MALAISE [None]
  - PULMONARY OEDEMA [None]
  - PYREXIA [None]
  - STAPHYLOCOCCAL SEPSIS [None]
  - TREMOR [None]
  - VOMITING [None]
  - WEIGHT DECREASED [None]
